FAERS Safety Report 9399187 (Version 1)
Quarter: 2013Q3

REPORT INFORMATION
  Report Type: Spontaneous
  Country: US (occurrence: US)
  Receive Date: 20130715
  Receipt Date: 20130715
  Transmission Date: 20140515
  Serious: No
  Sender: FDA-Public Use
  Company Number: US-009507513-1307USA005391

PATIENT
  Sex: Male

DRUGS (10)
  1. JANUVIA [Suspect]
     Indication: TYPE 2 DIABETES MELLITUS
     Dosage: 100 MG, QD
     Route: 048
     Dates: start: 20130702
  2. PLAVIX [Concomitant]
  3. METOPROLOL [Concomitant]
  4. ALLOPURINOL [Concomitant]
  5. CLORAZEPATE DIPOTASSIUM [Concomitant]
  6. LISINOPRIL [Concomitant]
  7. PIOGLITAZONE HYDROCHLORIDE [Concomitant]
  8. KLOR-CON [Concomitant]
  9. ZETIA [Concomitant]
  10. FOLIC ACID [Concomitant]

REACTIONS (1)
  - Dysuria [Unknown]
